FAERS Safety Report 4623453-2 (Version None)
Quarter: 2005Q1

REPORT INFORMATION
  Report Type: 
  Country: None (occurrence: None)
  Receive Date: 20050330
  Receipt Date: 20050316
  Transmission Date: 20050727
  Serious: Yes (Hospitalization)
  Sender: FDA-Public Use
  Company Number: 2005048289

PATIENT
  Age: 63 Year
  Sex: Male

DRUGS (2)
  1. CELEBRA (CELECOXIB) [Suspect]
     Indication: PAIN
     Dosage: (200 MG), ORAL
     Route: 048
     Dates: start: 20040908, end: 20040908
  2. CAPTOPRIL [Concomitant]

REACTIONS (2)
  - ANAPHYLACTIC SHOCK [None]
  - PARAESTHESIA [None]
